FAERS Safety Report 11211560 (Version 1)
Quarter: 2015Q2

REPORT INFORMATION
  Report Type: Spontaneous
  Country: GB (occurrence: None)
  Receive Date: 20150619
  Receipt Date: 20150619
  Transmission Date: 20150821
  Serious: Yes (Hospitalization, Disabling, Other)
  Sender: FDA-Public Use
  Company Number: GB-H14001-15-00953

PATIENT
  Age: 62 Year
  Sex: Female

DRUGS (13)
  1. VISCOTEARS (CARBOMER) (CARBOMER) [Concomitant]
  2. TEMAZEPAM (TEMAZEPAM) (UNKNOWN) (TEMAZEPAM) [Concomitant]
  3. LORATADINE (LORATADINE) (UNKNOWN) (LORATADINE) [Concomitant]
  4. OILATUM (PARAFFIN, LIQUID) (UNKNOWN) (PARAFFIN, LIQUID) [Concomitant]
  5. CO-AMOXICLAV (AUGMENTIN /00756801/) (UNKNOWN) (AMOXICILLIN SODIUM, CLAVULANATE POTASSIUM) [Suspect]
     Active Substance: AMOXICILLIN\CLAVULANATE POTASSIUM
     Indication: PRODUCT USED FOR UNKNOWN INDICATION
     Dates: start: 20150601
  6. CAPASAL (CAPASAL) (UNKNOWN) (SALICYLIC ACID, COAL TAR, COCOS NUCIFERA OIL) [Concomitant]
  7. DIPROBASE (DIPROBASE /01132701/) (UNKNOWN) (CETOSTEARYL ALCOHOL, PARAFFIN, LIQUID, CETOMACROGOL, WHITE SOFT PARAFFIN) [Concomitant]
  8. HYDROCORTISONE (HYDROCORTISONE) (UNKNOWN) (HYDROCORTISONE) [Concomitant]
  9. CO-DYDRAMOL (PARAMOL-118) (UNKNOWN) (PARACETAMOL, DIHYDROCODEINE BITARTRATE) [Concomitant]
  10. OTOMIZE (OTOMIZE) (UNKNOWN) (DEXAMETHASONE, NEOMYCIN SULFATE) [Concomitant]
  11. BETAMETHASONE VALERATE (BETAMETHASONE VALERATE) (UNKNOWN) (BETAMETHASONE VALERATE) [Concomitant]
  12. CETRABEN EMOLLIENT CREAM (DIPROBASE /01210201/) (UNKNOWN) (PARAFFIN, LIQUID, WHITE SOFT PARAFFIN) [Concomitant]
  13. ZOPICLONE (ZOPICLONE) (UNKNOWN) (ZOPICLONE) [Concomitant]

REACTIONS (2)
  - Jaundice cholestatic [None]
  - Infection [None]

NARRATIVE: CASE EVENT DATE: 20150603
